FAERS Safety Report 6909037-1 (Version None)
Quarter: 2010Q3

REPORT INFORMATION
  Report Type: 
  Country: None (occurrence: None)
  Receive Date: 20100805
  Receipt Date: 20100730
  Transmission Date: 20110219
  Serious: Yes (Hospitalization)
  Sender: FDA-Public Use
  Company Number: FR-BRISTOL-MYERS SQUIBB COMPANY-14784193

PATIENT
  Age: 47 Year
  Sex: Female
  Weight: 54 kg

DRUGS (3)
  1. ABILIFY [Suspect]
     Indication: PSYCHOTIC DISORDER
     Dosage: 20MG
     Route: 048
     Dates: start: 20060101
  2. AMITRIPTYLINE HCL [Suspect]
     Indication: DYSTHYMIC DISORDER
     Route: 048
     Dates: start: 20060101
  3. LOXAPAC [Suspect]
     Route: 048
     Dates: start: 20060101, end: 20090611

REACTIONS (3)
  - LIVE BIRTH [None]
  - PREGNANCY [None]
  - PYELONEPHRITIS [None]
